FAERS Safety Report 23726712 (Version 1)
Quarter: 2024Q2

REPORT INFORMATION
  Report Type: Report from Study
  Country: IE (occurrence: IE)
  Receive Date: 20240410
  Receipt Date: 20240410
  Transmission Date: 20240716
  Serious: Yes (Other)
  Sender: FDA-Public Use
  Company Number: IE-Merck Healthcare KGaA-2024018541

PATIENT
  Sex: Male

DRUGS (2)
  1. MAVENCLAD [Suspect]
     Active Substance: CLADRIBINE
     Indication: Relapsing-remitting multiple sclerosis
     Dosage: YEAR ONE WEEK ONE THERAPY AT A DOSE OF 2 DF ON DAYS 1 TO 3 AND 1 DF ON DAYS 4 TO 5
     Route: 048
     Dates: start: 20240228
  2. MAVENCLAD [Suspect]
     Active Substance: CLADRIBINE
     Dosage: YEAR ONE WEEK FIVE THERAPY AT A DOSE OF 2 DF ON DAYS 1 TO 3 AND 1 DF ON DAYS 4 TO 5
     Route: 048
     Dates: start: 20240327, end: 20240331

REACTIONS (2)
  - Gait inability [Not Recovered/Not Resolved]
  - Arthropathy [Not Recovered/Not Resolved]
